FAERS Safety Report 22060333 (Version 2)
Quarter: 2023Q2

REPORT INFORMATION
  Report Type: Report from Study
  Country: JP (occurrence: JP)
  Receive Date: 20230303
  Receipt Date: 20230404
  Transmission Date: 20230721
  Serious: No
  Sender: FDA-Public Use
  Company Number: JP-JNJJAKJPN-J23016664

PATIENT

DRUGS (2)
  1. RILPIVIRINE [Suspect]
     Active Substance: RILPIVIRINE
     Indication: Product used for unknown indication
     Dosage: RILPIVIRINE:900MG
     Route: 030
  2. VOCABRIA [Suspect]
     Active Substance: CABOTEGRAVIR SODIUM
     Indication: Product used for unknown indication
     Dosage: DOSE UNKNOWN
     Route: 030

REACTIONS (4)
  - Administration site pain [Unknown]
  - Dizziness [Unknown]
  - Feeling abnormal [Unknown]
  - Therapy cessation [Unknown]
